FAERS Safety Report 17565967 (Version 1)
Quarter: 2020Q1

REPORT INFORMATION
  Report Type: Other
  Country: FR (occurrence: FR)
  Receive Date: 20200320
  Receipt Date: 20200320
  Transmission Date: 20200409
  Serious: Yes (Hospitalization, Other)
  Sender: FDA-Public Use
  Company Number: FR-COVIS PHARMA B.V.-2020COV00111

PATIENT
  Age: 68 Year
  Sex: Male
  Weight: 65 kg

DRUGS (5)
  1. ALPRAZOLAM. [Concomitant]
     Active Substance: ALPRAZOLAM
     Dosage: UNK
     Dates: start: 20200203, end: 20200211
  2. RILUTEK [Suspect]
     Active Substance: RILUZOLE
     Indication: AMYOTROPHIC LATERAL SCLEROSIS
     Dosage: 100 MG, 1X/DAY
     Route: 048
     Dates: start: 201903, end: 20200209
  3. OKIMUS [Suspect]
     Active Substance: HAWTHORN LEAF WITH FLOWER\QUININE
     Indication: PRODUCT USED FOR UNKNOWN INDICATION
     Dosage: 3 DF, 1X/DAY
     Route: 048
  4. INNOVAIR [Concomitant]
     Active Substance: BECLOMETHASONE DIPROPIONATE\FORMOTEROL
  5. VENLAFAXINE [Concomitant]
     Active Substance: VENLAFAXINE HYDROCHLORIDE
     Dosage: UNK
     Dates: start: 20200203, end: 20200211

REACTIONS (1)
  - Pancreatitis acute [Recovering/Resolving]

NARRATIVE: CASE EVENT DATE: 20200130
